FAERS Safety Report 5288403-7 (Version None)
Quarter: 2007Q2

REPORT INFORMATION
  Report Type: 
  Country: None (occurrence: None)
  Receive Date: 20070405
  Receipt Date: 20070329
  Transmission Date: 20071010
  Serious: Yes (Hospitalization)
  Sender: FDA-Public Use
  Company Number: 2007AP01914

PATIENT
  Age: 56 Year
  Sex: Male

DRUGS (5)
  1. OMEPRAL [Suspect]
     Indication: REFLUX OESOPHAGITIS
     Route: 048
     Dates: start: 20060522, end: 20070315
  2. CERCINE [Concomitant]
     Route: 048
     Dates: start: 20070312
  3. SILECE [Concomitant]
     Route: 048
     Dates: start: 20050927
  4. MAGNESIUM OXIDE [Concomitant]
     Dosage: DOSE NOT CHANGED
     Route: 048
  5. TSUMURA DAI-KENCHI-TOU [Concomitant]
     Dosage: DOSE NOT CHANGED
     Route: 048

REACTIONS (1)
  - RHABDOMYOLYSIS [None]
